FAERS Safety Report 9603127 (Version 2)
Quarter: 2013Q4

REPORT INFORMATION
  Report Type: Spontaneous
  Country: BR (occurrence: BR)
  Receive Date: 20131007
  Receipt Date: 20131022
  Transmission Date: 20140711
  Serious: Yes (Other)
  Sender: FDA-Public Use
  Company Number: BR-ELI_LILLY_AND_COMPANY-BR201309009253

PATIENT
  Sex: Female

DRUGS (3)
  1. FORTEO [Suspect]
     Indication: OSTEOPOROSIS
     Dosage: UNK UNK, UNKNOWN
     Route: 058
     Dates: start: 20121009, end: 20130105
  2. HUMIRA [Suspect]
     Indication: ARTHRITIS
     Dosage: 40 MG, 2/M
     Route: 065
     Dates: start: 201210, end: 201305
  3. DEXTRAN [Concomitant]
     Indication: CATARACT
     Dosage: UNK, UNKNOWN
     Route: 065

REACTIONS (4)
  - Cataract [Recovering/Resolving]
  - Hypersensitivity [Recovered/Resolved]
  - Weight decreased [Unknown]
  - Drug withdrawal syndrome [Unknown]
